FAERS Safety Report 10777310 (Version 1)
Quarter: 2015Q1

REPORT INFORMATION
  Report Type: Spontaneous
  Country: US (occurrence: US)
  Receive Date: 20150209
  Receipt Date: 20150209
  Transmission Date: 20150721
  Serious: Yes (Hospitalization, Other)
  Sender: FDA-Public Use
  Company Number: US-RECKITT BENCKISER PHARMACEUTICAL, INC-RB-68110-2014

PATIENT

DRUGS (8)
  1. GLYBURIDE/METFORMIN [Concomitant]
     Active Substance: GLYBURIDE\METFORMIN
     Indication: TYPE 2 DIABETES MELLITUS
     Dosage: UNKNOWN DOSING DETAILS
     Route: 048
     Dates: start: 2006
  2. SIMVASTATIN. [Concomitant]
     Active Substance: SIMVASTATIN
     Indication: HYPERLIPIDAEMIA
     Dosage: UNKNOWN DOSING DETAILS
     Route: 048
     Dates: start: 2004
  3. COZAAR [Concomitant]
     Active Substance: LOSARTAN POTASSIUM
     Indication: PRODUCT USED FOR UNKNOWN INDICATION
     Dosage: UNKNOWN DOSING DETAILS
     Route: 048
     Dates: start: 1998
  4. SERTRALINE [Concomitant]
     Active Substance: SERTRALINE HYDROCHLORIDE
     Indication: DEPRESSION
     Dosage: UNKNOWN DOSING DETAILS
     Route: 048
     Dates: start: 2007
  5. FENOFIBRATE. [Concomitant]
     Active Substance: FENOFIBRATE
     Indication: HYPERLIPIDAEMIA
     Dosage: UNKNOWN DOSING DETAILS
     Route: 048
     Dates: start: 2010
  6. BUPRENORPHINE UNSPECIFIED [Suspect]
     Active Substance: BUPRENORPHINE
     Indication: NECK PAIN
     Dosage: UNSPECIFIED FORMULATION AND UNIT DOSE STRENGTH
     Route: 048
     Dates: start: 2011, end: 20140330
  7. FISH OIL [Concomitant]
     Active Substance: FISH OIL
     Indication: NUTRITIONAL SUPPLEMENTATION
     Dosage: UNKNOWN DOSING DETAILS
     Route: 048
     Dates: start: 2008
  8. MULTIVITAMINS [Concomitant]
     Active Substance: VITAMINS
     Indication: NUTRITIONAL SUPPLEMENTATION
     Dosage: UNKNOWN DOSING DETAILS
     Route: 048
     Dates: start: 2003

REACTIONS (5)
  - Off label use [Recovered/Resolved]
  - Laceration [Unknown]
  - Drug dependence [Recovered/Resolved with Sequelae]
  - Incorrect route of drug administration [Recovered/Resolved]
  - Drug detoxification [Recovered/Resolved with Sequelae]

NARRATIVE: CASE EVENT DATE: 2011
